FAERS Safety Report 23436757 (Version 17)
Quarter: 2025Q1

REPORT INFORMATION
  Report Type: Report from Study
  Country: AT (occurrence: AT)
  Receive Date: 20240124
  Receipt Date: 20250211
  Transmission Date: 20250408
  Serious: Yes (Hospitalization, Other)
  Sender: AMGEN
  Company Number: AT-AMGEN-AUTSP2024011752

PATIENT
  Age: 37 Year
  Sex: Female

DRUGS (211)
  1. TRASTUZUMAB [Suspect]
     Active Substance: TRASTUZUMAB
     Indication: HER2 positive breast cancer
     Dosage: 120 MILLIGRAM, QMO (20 MILLIGRAM IN 1 MONTH)
     Route: 065
     Dates: start: 20161201
  2. TRASTUZUMAB [Suspect]
     Active Substance: TRASTUZUMAB
     Indication: Prophylaxis
     Dosage: 8 MILLIGRAM/KILOGRAM, Q3WK
     Route: 040
     Dates: start: 20161020, end: 20161020
  3. TRASTUZUMAB [Suspect]
     Active Substance: TRASTUZUMAB
     Indication: Breast cancer metastatic
     Dosage: 8 MILLIGRAM/KILOGRAM, Q3WK
     Route: 040
     Dates: start: 20170112, end: 20170112
  4. TRASTUZUMAB [Suspect]
     Active Substance: TRASTUZUMAB
     Dosage: 6 MILLIGRAM/KILOGRAM, Q3WK
     Route: 040
     Dates: start: 20170227, end: 20170227
  5. TRASTUZUMAB [Suspect]
     Active Substance: TRASTUZUMAB
     Dosage: 6 MILLIGRAM/KILOGRAM, Q3WK
     Route: 040
     Dates: start: 20190906
  6. XGEVA [Suspect]
     Active Substance: DENOSUMAB
     Indication: Prophylaxis
     Dosage: 120 MILLIGRAM, QMO
     Route: 058
     Dates: start: 20161201
  7. ARANESP [Suspect]
     Active Substance: DARBEPOETIN ALFA
     Indication: Anaemia prophylaxis
     Dosage: 150 MICROGRAM, QWK
     Route: 058
     Dates: start: 20161201, end: 201701
  8. ARANESP [Suspect]
     Active Substance: DARBEPOETIN ALFA
     Dosage: 150 MICROGRAM, QMO
     Route: 058
     Dates: start: 20161201
  9. HERCEPTIN [Suspect]
     Active Substance: TRASTUZUMAB
     Indication: HER2 positive breast cancer
     Dosage: 8 MICROGRAM/KILOGRAM, Q3WK CUMULATIVE DOSE 104 MG/KG
     Route: 040
     Dates: start: 20161020, end: 20170112
  10. HERCEPTIN [Suspect]
     Active Substance: TRASTUZUMAB
     Indication: Breast cancer metastatic
     Dosage: 6 MICROGRAM/KILOGRAM, Q3WK
     Route: 040
     Dates: start: 20170202, end: 20180108
  11. HERCEPTIN [Suspect]
     Active Substance: TRASTUZUMAB
     Dosage: 6 MICROGRAM/KILOGRAM, Q3WK
     Route: 040
     Dates: start: 20190906, end: 20190906
  12. HERCEPTIN [Suspect]
     Active Substance: TRASTUZUMAB
     Dosage: 8 MICROGRAM/KILOGRAM, Q3WK
     Route: 040
     Dates: start: 20170112, end: 20170112
  13. HERCEPTIN [Suspect]
     Active Substance: TRASTUZUMAB
     Dosage: 6 MICROGRAM/KILOGRAM, Q3WK
     Route: 040
     Dates: start: 20170927, end: 20180108
  14. HERCEPTIN [Suspect]
     Active Substance: TRASTUZUMAB
     Dosage: 6 MICROGRAM/KILOGRAM, Q3WK
     Route: 040
     Dates: start: 20190906, end: 20210927
  15. HERCEPTIN [Suspect]
     Active Substance: TRASTUZUMAB
     Dosage: 8 MICROGRAM/KILOGRAM, Q3WK
     Route: 040
     Dates: start: 20161020, end: 20161020
  16. HERCEPTIN [Suspect]
     Active Substance: TRASTUZUMAB
     Dosage: 6 MICROGRAM/KILOGRAM, Q3WK
     Route: 040
     Dates: start: 20190906
  17. HERCEPTIN [Suspect]
     Active Substance: TRASTUZUMAB
     Dosage: 6 MICROGRAM/KILOGRAM, Q3WK, MOST RECENT DOSE PRIOR TO THE EVENT: 02/FEB/2017
     Route: 040
     Dates: start: 20170227, end: 20180108
  18. HERCEPTIN [Suspect]
     Active Substance: TRASTUZUMAB
     Dosage: 8 MICROGRAM/KILOGRAM, Q3WK
     Route: 040
     Dates: start: 20170112, end: 20170112
  19. HERCEPTIN [Suspect]
     Active Substance: TRASTUZUMAB
     Dosage: 6 MICROGRAM/KILOGRAM, Q3WK
     Route: 040
     Dates: start: 20210929
  20. HERCEPTIN [Suspect]
     Active Substance: TRASTUZUMAB
     Dosage: 6 MICROGRAM/KILOGRAM, Q3WK
     Route: 040
     Dates: start: 20210929, end: 20220930
  21. CYTOXAN [Suspect]
     Active Substance: CYCLOPHOSPHAMIDE
     Indication: HER2 positive breast cancer
     Dosage: 500 MICROGRAM/SQ. METER, QD FREQUENCY TEXT:ONCE
     Route: 040
     Dates: start: 20161005, end: 20161005
  22. CYTOXAN [Suspect]
     Active Substance: CYCLOPHOSPHAMIDE
     Indication: Breast cancer metastatic
     Dosage: 500 MICROGRAM/SQ. METER, QD CUMULATIVE DOSE 500 UG/M2
     Route: 040
  23. CYTOXAN [Suspect]
     Active Substance: CYCLOPHOSPHAMIDE
     Indication: Breast cancer metastatic
     Route: 040
  24. CYTOXAN [Suspect]
     Active Substance: CYCLOPHOSPHAMIDE
     Indication: Breast cancer metastatic
  25. CAPECITABINE [Suspect]
     Active Substance: CAPECITABINE
     Indication: HER2 positive breast cancer
     Route: 048
     Dates: start: 20220930, end: 20221024
  26. CAPECITABINE [Suspect]
     Active Substance: CAPECITABINE
     Indication: Breast cancer metastatic
     Dosage: 1000 MILLIGRAM, BID
     Route: 048
     Dates: start: 20210904, end: 20210927
  27. CAPECITABINE [Suspect]
     Active Substance: CAPECITABINE
     Indication: Breast cancer metastatic
     Dosage: 1000 MILLIGRAM, Q12H
     Route: 048
     Dates: start: 20210929, end: 20211114
  28. CAPECITABINE [Suspect]
     Active Substance: CAPECITABINE
     Dosage: 1500 MILLIGRAM, Q12H CUMULATIVE DOSE 466000 MG
     Route: 048
     Dates: start: 20210430, end: 20210903
  29. CAPECITABINE [Suspect]
     Active Substance: CAPECITABINE
     Dosage: 1000 MILLIGRAM, BID
     Route: 048
     Dates: start: 20210929, end: 20220114
  30. CAPECITABINE [Suspect]
     Active Substance: CAPECITABINE
     Dosage: 1000 MILLIGRAM, Q12H
     Route: 048
     Dates: start: 20220204, end: 20220930
  31. CAPECITABINE [Suspect]
     Active Substance: CAPECITABINE
     Dosage: 1000 MILLIGRAM, Q12H
     Route: 048
     Dates: start: 20210404, end: 20220114
  32. CAPECITABINE [Suspect]
     Active Substance: CAPECITABINE
     Dosage: 2000 MILLIGRAM, QD
     Route: 048
     Dates: start: 20220204, end: 20220930
  33. CAPECITABINE [Suspect]
     Active Substance: CAPECITABINE
     Dosage: 2000 MILLIGRAM, QD
     Route: 048
     Dates: start: 20210404, end: 20220114
  34. CAPECITABINE [Suspect]
     Active Substance: CAPECITABINE
     Dosage: 1000 MILLIGRAM, Q12H/ DAY 1- DAY 14
     Route: 048
     Dates: start: 20210904, end: 20220114
  35. CAPECITABINE [Suspect]
     Active Substance: CAPECITABINE
     Route: 048
     Dates: start: 20210903
  36. CAPECITABINE [Suspect]
     Active Substance: CAPECITABINE
     Dosage: 1000 MILLIGRAM, Q12H
     Route: 048
     Dates: start: 20210404, end: 20210927
  37. KADCYLA [Suspect]
     Active Substance: ADO-TRASTUZUMAB EMTANSINE
     Indication: HER2 positive breast cancer
     Dosage: 3.6 MILLIGRAM/KILOGRAM, Q3WK CUMULATIVE DOSE 30.968 MG/KG
     Route: 040
     Dates: start: 20180205, end: 20190816
  38. KADCYLA [Suspect]
     Active Substance: ADO-TRASTUZUMAB EMTANSINE
     Indication: Breast cancer metastatic
     Dosage: 36 MILLIGRAM/KILOGRAM, Q3WK, CUMULATIVE DOSE 90 MG/KG
     Route: 040
     Dates: start: 20180205, end: 20190816
  39. KADCYLA [Suspect]
     Active Substance: ADO-TRASTUZUMAB EMTANSINE
     Indication: Breast cancer metastatic
     Route: 065
  40. KADCYLA [Suspect]
     Active Substance: ADO-TRASTUZUMAB EMTANSINE
     Indication: HER2 positive breast cancer
     Route: 065
  41. TAXOTERE [Suspect]
     Active Substance: DOCETAXEL
     Indication: Breast cancer metastatic
     Dosage: 75 MICROGRAM/SQ. METER, Q3WK CUMULATIVE DOSE 450 MG
     Route: 040
     Dates: start: 20161020, end: 20161020
  42. TAXOTERE [Suspect]
     Active Substance: DOCETAXEL
     Indication: HER2 positive breast cancer
     Dosage: 75 MICROGRAM/SQ. METER, Q3WK
     Route: 040
     Dates: start: 20161111, end: 20161111
  43. TAXOTERE [Suspect]
     Active Substance: DOCETAXEL
     Dosage: 100 MICROGRAM/SQ. METER, Q3WK
     Route: 040
     Dates: start: 20161201, end: 20170202
  44. TAXOTERE [Suspect]
     Active Substance: DOCETAXEL
     Dosage: 100 MICROGRAM/SQ. METER, Q3WK
     Route: 040
     Dates: start: 20161201, end: 20161222
  45. TAXOTERE [Suspect]
     Active Substance: DOCETAXEL
     Dosage: 100 MICROGRAM/SQ. METER, Q3WK
     Route: 040
     Dates: start: 20170112, end: 20170202
  46. ENHERTU [Suspect]
     Active Substance: FAM-TRASTUZUMAB DERUXTECAN-NXKI
     Indication: HER2 positive breast cancer
     Dosage: 5.4 MILLIGRAM/KILOGRAM, Q3WK
     Route: 040
     Dates: start: 20220924, end: 20221114
  47. ENHERTU [Suspect]
     Active Substance: FAM-TRASTUZUMAB DERUXTECAN-NXKI
     Indication: Breast cancer metastatic
     Dosage: 4.4 MILLIGRAM/KILOGRAM, Q3WK
     Route: 040
     Dates: start: 20221202, end: 20230714
  48. ENHERTU [Suspect]
     Active Substance: FAM-TRASTUZUMAB DERUXTECAN-NXKI
     Dosage: 4.4 MILLIGRAM/KILOGRAM, Q3WK
     Route: 040
     Dates: start: 20230118, end: 20230118
  49. ENHERTU [Suspect]
     Active Substance: FAM-TRASTUZUMAB DERUXTECAN-NXKI
     Dosage: 4.4 MILLIGRAM/KILOGRAM, Q3WK
     Route: 040
     Dates: start: 20230811, end: 20230811
  50. ENHERTU [Suspect]
     Active Substance: FAM-TRASTUZUMAB DERUXTECAN-NXKI
     Dosage: 5.4 MILLIGRAM/KILOGRAM, Q3WK
     Route: 040
     Dates: start: 20221114, end: 20221114
  51. ENHERTU [Suspect]
     Active Substance: FAM-TRASTUZUMAB DERUXTECAN-NXKI
     Dosage: 8 MILLIGRAM/KILOGRAM, Q3WK
     Route: 040
     Dates: start: 20161020, end: 20161020
  52. ENHERTU [Suspect]
     Active Substance: FAM-TRASTUZUMAB DERUXTECAN-NXKI
     Dosage: 8 MILLIGRAM/KILOGRAM, Q3WK
     Route: 040
     Dates: start: 20170112, end: 20170112
  53. ENHERTU [Suspect]
     Active Substance: FAM-TRASTUZUMAB DERUXTECAN-NXKI
     Dosage: 6 MILLIGRAM/KILOGRAM, Q3WK
     Route: 040
     Dates: start: 20170227, end: 20170227
  54. ENHERTU [Suspect]
     Active Substance: FAM-TRASTUZUMAB DERUXTECAN-NXKI
     Dosage: 6 MILLIGRAM/KILOGRAM, Q3WK
     Route: 040
     Dates: start: 20190906, end: 20190906
  55. ENHERTU [Suspect]
     Active Substance: FAM-TRASTUZUMAB DERUXTECAN-NXKI
     Dosage: 5.4 MILLIGRAM/KILOGRAM, Q3WK
     Route: 040
     Dates: start: 20220924, end: 20220924
  56. ENHERTU [Suspect]
     Active Substance: FAM-TRASTUZUMAB DERUXTECAN-NXKI
     Dosage: 4.4 MILLIGRAM/KILOGRAM, Q3WK
     Route: 040
     Dates: start: 20221202, end: 20221202
  57. ENHERTU [Suspect]
     Active Substance: FAM-TRASTUZUMAB DERUXTECAN-NXKI
     Dosage: 4.4 MILLIGRAM/KILOGRAM, Q3WK
     Route: 040
     Dates: start: 20230714, end: 20230714
  58. ELLENCE [Suspect]
     Active Substance: EPIRUBICIN HYDROCHLORIDE
     Indication: HER2 positive breast cancer
     Dosage: 100 MILLIGRAM/SQ. METER, QD (ONE CYCLE PER REGIMEN)
     Route: 040
     Dates: start: 20161005, end: 20161005
  59. ELLENCE [Suspect]
     Active Substance: EPIRUBICIN HYDROCHLORIDE
     Indication: Breast cancer metastatic
     Dosage: 100 MILLIGRAM/SQ. METER, QD (ONE CYCLE PER REGIMEN) CUMULATIVE DOSE 100 MG/M2
     Route: 040
  60. ELLENCE [Suspect]
     Active Substance: EPIRUBICIN HYDROCHLORIDE
     Indication: Breast cancer metastatic
  61. TUKYSA [Suspect]
     Active Substance: TUCATINIB
     Indication: HER2 positive breast cancer
     Dosage: 600 MILLIGRAM, QD CUMULATIVE DOSE 318861.3 MG
     Route: 065
     Dates: start: 20210430, end: 20221023
  62. TUKYSA [Suspect]
     Active Substance: TUCATINIB
     Indication: Breast cancer metastatic
     Dosage: 300 MILLIGRAM, Q12H
     Route: 048
     Dates: start: 20210129, end: 20221023
  63. TUKYSA [Suspect]
     Active Substance: TUCATINIB
     Dosage: 600 MILLIGRAM, QD
     Route: 048
     Dates: start: 20210929, end: 20211023
  64. TUKYSA [Suspect]
     Active Substance: TUCATINIB
     Dosage: 1200 MILLIGRAM, QD
     Route: 048
     Dates: start: 20210430
  65. TUKYSA [Suspect]
     Active Substance: TUCATINIB
     Dosage: 300 MILLIGRAM, QD
     Route: 048
     Dates: start: 20210929, end: 20211023
  66. TUKYSA [Suspect]
     Active Substance: TUCATINIB
     Route: 065
  67. TUKYSA [Suspect]
     Active Substance: TUCATINIB
     Route: 065
  68. TUKYSA [Suspect]
     Active Substance: TUCATINIB
     Route: 065
  69. TUKYSA [Suspect]
     Active Substance: TUCATINIB
     Dosage: 600 MILLIGRAM, QD
     Route: 048
     Dates: start: 20210430, end: 20210927
  70. DOCETAXEL [Suspect]
     Active Substance: DOCETAXEL
     Indication: HER2 positive breast cancer
     Dosage: 75 MICROGRAM/SQ. METER, Q3WK
     Route: 040
     Dates: start: 20161020, end: 20161020
  71. DOCETAXEL [Suspect]
     Active Substance: DOCETAXEL
     Indication: Breast cancer metastatic
     Dosage: 75 MICROGRAM/SQ. METER, Q3WK
     Route: 040
     Dates: start: 20161111, end: 20161111
  72. DOCETAXEL [Suspect]
     Active Substance: DOCETAXEL
     Dosage: 100 MICROGRAM/SQ. METER, Q3WK
     Route: 040
     Dates: start: 20161201, end: 20161222
  73. DOCETAXEL [Suspect]
     Active Substance: DOCETAXEL
     Dosage: 100 MICROGRAM/SQ. METER, Q3WK
     Route: 040
     Dates: start: 20170112
  74. LOPERAMIDE [Suspect]
     Active Substance: LOPERAMIDE
     Indication: Diarrhoea
     Route: 048
     Dates: start: 20171106, end: 20171127
  75. LOPERAMIDE [Suspect]
     Active Substance: LOPERAMIDE
     Route: 048
     Dates: start: 20171127
  76. PERTUZUMAB [Suspect]
     Active Substance: PERTUZUMAB
     Indication: HER2 positive breast cancer
     Dosage: 840 MILLIGRAM, Q3WK
     Route: 040
     Dates: start: 20161020, end: 20161020
  77. PERTUZUMAB [Suspect]
     Active Substance: PERTUZUMAB
     Indication: Breast cancer metastatic
     Dosage: 420 MILLIGRAM, Q3WK
     Route: 040
     Dates: start: 20170202, end: 20180108
  78. PERTUZUMAB [Suspect]
     Active Substance: PERTUZUMAB
     Indication: Breast cancer metastatic
     Dosage: 420 MILLIGRAM, Q3WK
     Route: 040
     Dates: start: 20190906, end: 20210409
  79. PERTUZUMAB [Suspect]
     Active Substance: PERTUZUMAB
     Dosage: 420 MILLIGRAM, Q3WK
     Route: 040
     Dates: start: 20170227, end: 20180108
  80. PERTUZUMAB [Suspect]
     Active Substance: PERTUZUMAB
     Dosage: 840 MILLIGRAM, Q3WK
     Route: 040
     Dates: start: 20170112, end: 20170112
  81. PERTUZUMAB [Suspect]
     Active Substance: PERTUZUMAB
     Dosage: 800 MILLIGRAM, Q3WK
     Route: 040
     Dates: start: 20161020, end: 20161020
  82. PERTUZUMAB [Suspect]
     Active Substance: PERTUZUMAB
     Dosage: 420 MILLIGRAM, Q3WK
     Route: 040
     Dates: start: 20170112, end: 20170112
  83. CYCLOPHOSPHAMIDE [Suspect]
     Active Substance: CYCLOPHOSPHAMIDE
     Indication: Breast cancer metastatic
     Dosage: 500 MILLIGRAM/SQ. METER, QD
     Route: 040
     Dates: start: 20161005, end: 20161005
  84. CYCLOPHOSPHAMIDE [Suspect]
     Active Substance: CYCLOPHOSPHAMIDE
     Indication: HER2 positive breast cancer
  85. XELODA [Suspect]
     Active Substance: CAPECITABINE
     Indication: HER2 positive breast cancer
     Route: 048
     Dates: end: 20210903
  86. XELODA [Suspect]
     Active Substance: CAPECITABINE
     Route: 048
     Dates: start: 20220923, end: 20221024
  87. TUCATINIB [Suspect]
     Active Substance: TUCATINIB
     Indication: HER2 positive breast cancer
     Dosage: 600 MILLIGRAM, QD CUMULATIVE DOSE 317100 MG
     Route: 048
     Dates: start: 20210430, end: 20210927
  88. TUCATINIB [Suspect]
     Active Substance: TUCATINIB
     Dosage: 600 MILLIGRAM, QD
     Route: 048
     Dates: start: 20210929, end: 20221023
  89. TUCATINIB [Suspect]
     Active Substance: TUCATINIB
     Dosage: 300 MILLIGRAM, Q12H
     Route: 048
     Dates: start: 20210430, end: 20210927
  90. TUCATINIB [Suspect]
     Active Substance: TUCATINIB
     Dosage: 300 MILLIGRAM, QD
     Route: 048
     Dates: start: 20210129, end: 20221023
  91. TUCATINIB [Suspect]
     Active Substance: TUCATINIB
     Dosage: 600 MILLIGRAM, QD
     Route: 048
     Dates: start: 20210927
  92. TUCATINIB [Suspect]
     Active Substance: TUCATINIB
     Indication: Breast cancer metastatic
     Dosage: 300 MILLIGRAM, QD CUMULATIVE DOSE 325200 MG
     Route: 048
     Dates: start: 20210129, end: 20221023
  93. TUCATINIB [Suspect]
     Active Substance: TUCATINIB
     Indication: HER2 positive breast cancer
     Dosage: 300 MILLIGRAM, Q12H
     Route: 048
     Dates: start: 20210430, end: 20210927
  94. TUCATINIB [Suspect]
     Active Substance: TUCATINIB
     Dosage: 300 MILLIGRAM, Q12H
     Route: 048
     Dates: start: 20210929, end: 20221023
  95. TUCATINIB [Suspect]
     Active Substance: TUCATINIB
     Dosage: 600 MILLIGRAM, QD
     Route: 065
     Dates: start: 20210430, end: 20210927
  96. TUCATINIB [Suspect]
     Active Substance: TUCATINIB
     Dosage: 300 MILLIGRAM, Q12H
     Route: 065
     Dates: start: 20210927
  97. TUCATINIB [Suspect]
     Active Substance: TUCATINIB
     Dosage: 300 MILLIGRAM, Q12H
     Route: 048
     Dates: start: 20210430, end: 20221023
  98. TUCATINIB [Suspect]
     Active Substance: TUCATINIB
     Dosage: 300 MILLIGRAM, Q12H
     Route: 048
     Dates: start: 20210929
  99. FAM-TRASTUZUMAB DERUXTECAN-NXKI [Suspect]
     Active Substance: FAM-TRASTUZUMAB DERUXTECAN-NXKI
     Indication: HER2 positive breast cancer
     Dosage: 5.4 MILLIGRAM/KILOGRAM, Q3WK
     Route: 040
     Dates: start: 20220924, end: 20221114
  100. FAM-TRASTUZUMAB DERUXTECAN-NXKI [Suspect]
     Active Substance: FAM-TRASTUZUMAB DERUXTECAN-NXKI
     Dosage: 4.4 MILLIGRAM/KILOGRAM, Q3WK
     Route: 040
     Dates: start: 20221202, end: 20230714
  101. FAM-TRASTUZUMAB DERUXTECAN-NXKI [Suspect]
     Active Substance: FAM-TRASTUZUMAB DERUXTECAN-NXKI
     Dosage: 4.4 MILLIGRAM/KILOGRAM, Q3WK
     Route: 040
     Dates: start: 20230811
  102. TAZOBACTAM [Concomitant]
     Active Substance: TAZOBACTAM
     Indication: Product used for unknown indication
     Dosage: 4.5 GRAM, QD CUMULATIVE DOSE 22.5G
     Route: 042
     Dates: start: 20161208, end: 20161212
  103. HALCION [Concomitant]
     Active Substance: TRIAZOLAM
     Indication: Sleep disorder
     Route: 048
     Dates: start: 2016, end: 201610
  104. HALCION [Concomitant]
     Active Substance: TRIAZOLAM
     Route: 048
     Dates: start: 201610
  105. HALCION [Concomitant]
     Active Substance: TRIAZOLAM
     Route: 048
     Dates: start: 20201120
  106. LAXAGOL [Concomitant]
     Indication: Product used for unknown indication
     Route: 065
     Dates: start: 20170227
  107. LAXAGOL [Concomitant]
     Route: 065
     Dates: start: 20201120
  108. LAXAGOL [Concomitant]
     Route: 065
  109. LAXAGOL [Concomitant]
     Route: 065
  110. LAXAGOL [Concomitant]
     Route: 065
  111. LAXAGOL [Concomitant]
     Route: 065
  112. RAMIPRIL [Concomitant]
     Active Substance: RAMIPRIL
     Indication: Cardiovascular event prophylaxis
     Dosage: 2.5 MILLIGRAM, Q12H CUMULATIVE DOSE  870 MG
     Route: 048
     Dates: start: 20161112, end: 20161221
  113. RAMIPRIL [Concomitant]
     Active Substance: RAMIPRIL
     Dosage: 5 MILLIGRAM, Q12H
     Route: 048
     Dates: start: 20161222, end: 20170226
  114. RAMIPRIL [Concomitant]
     Active Substance: RAMIPRIL
     Dosage: 15 MILLIGRAM, QD
     Route: 048
     Dates: start: 20170227
  115. DEXIBUPROFEN [Concomitant]
     Active Substance: DEXIBUPROFEN
     Indication: Pain prophylaxis
     Dosage: 400 MILLIGRAM, Q8H
     Route: 048
     Dates: start: 20210312
  116. DEXIBUPROFEN [Concomitant]
     Active Substance: DEXIBUPROFEN
     Dosage: 1200 MILLIGRAM, QD
     Route: 048
     Dates: start: 20210312
  117. GUAR GUM [Concomitant]
     Active Substance: GUAR GUM
     Indication: Prophylaxis
     Route: 048
     Dates: start: 20161102, end: 2016
  118. AMOXICILLIN\CLAVULANATE POTASSIUM [Concomitant]
     Active Substance: AMOXICILLIN\CLAVULANATE POTASSIUM
     Indication: Product used for unknown indication
     Dosage: 1 GRAM, Q12H
     Route: 048
     Dates: start: 20161212, end: 20161216
  119. FENTANYL [Concomitant]
     Active Substance: FENTANYL
     Indication: Pain prophylaxis
     Dosage: 25 MICROGRAM, TID
     Route: 062
     Dates: start: 201706
  120. FENTANYL [Concomitant]
     Active Substance: FENTANYL
     Dosage: 75 MICROGRAM, QD
     Route: 062
     Dates: start: 201706
  121. FENTANYL [Concomitant]
     Active Substance: FENTANYL
     Dosage: 25 MICROGRAM, QD
     Route: 062
     Dates: start: 201706
  122. PERFALGAN [Concomitant]
     Active Substance: ACETAMINOPHEN
     Indication: Product used for unknown indication
     Dosage: 1 GRAM, QD CUMULATIVE DOSE 5 G
     Route: 042
     Dates: start: 20161208, end: 20161212
  123. ONDANSETRON HYDROCHLORIDE [Concomitant]
     Active Substance: ONDANSETRON HYDROCHLORIDE
     Indication: Nausea
     Route: 048
     Dates: start: 20181105
  124. IMODIUM [Concomitant]
     Active Substance: LOPERAMIDE HYDROCHLORIDE
     Indication: Diarrhoea
     Route: 048
     Dates: start: 20171106, end: 20171127
  125. IMODIUM [Concomitant]
     Active Substance: LOPERAMIDE HYDROCHLORIDE
     Route: 065
  126. MILNACIPRAN [Concomitant]
     Active Substance: MILNACIPRAN
     Indication: Product used for unknown indication
     Route: 065
     Dates: start: 20221123, end: 20230713
  127. ESOMEPRAZOLE [Concomitant]
     Active Substance: ESOMEPRAZOLE
     Indication: Product used for unknown indication
     Route: 065
     Dates: start: 20221123
  128. BISOPROLOL FUMARATE [Concomitant]
     Active Substance: BISOPROLOL FUMARATE
     Indication: Prophylaxis
     Dosage: 1.25 MILLIGRAM, QD CUMULATIVE DOSE 127.5 MG
     Route: 048
     Dates: start: 20161117, end: 20170226
  129. BISOPROLOL FUMARATE [Concomitant]
     Active Substance: BISOPROLOL FUMARATE
     Dosage: 2.5 MILLIGRAM, Q12H
     Route: 048
     Dates: start: 20170227
  130. BISOPROLOL FUMARATE [Concomitant]
     Active Substance: BISOPROLOL FUMARATE
     Dates: start: 20170227
  131. LASIX [Concomitant]
     Active Substance: FUROSEMIDE
     Indication: Prophylaxis
     Dosage: 40 MILLIGRAM, QD CUMULATIVE DOSE 120 MG
     Route: 042
     Dates: start: 20161112, end: 20161114
  132. LASIX [Concomitant]
     Active Substance: FUROSEMIDE
     Dosage: 30 MILLIGRAM, QD (120 MG)
     Route: 048
     Dates: start: 20161114, end: 201611
  133. METOCLOPRAMIDE [Concomitant]
     Active Substance: METOCLOPRAMIDE
     Indication: Prophylaxis of nausea and vomiting
     Dosage: 10 MILLIGRAM, Q3WK
     Route: 042
     Dates: start: 20180205, end: 20190816
  134. METOCLOPRAMIDE [Concomitant]
     Active Substance: METOCLOPRAMIDE
     Indication: Prophylaxis of nausea and vomiting
  135. MOVICOL [Concomitant]
     Active Substance: POLYETHYLENE GLYCOL 3350\POTASSIUM CHLORIDE\SODIUM BICARBONATE\SODIUM CHLORIDE
     Indication: Constipation prophylaxis
     Route: 048
     Dates: end: 201706
  136. CLOBAZAM [Concomitant]
     Active Substance: CLOBAZAM
     Indication: Epilepsy
     Route: 048
     Dates: start: 20220201
  137. LOPERAMIDE HYDROCHLORIDE [Concomitant]
     Active Substance: LOPERAMIDE HYDROCHLORIDE
     Indication: Diarrhoea
     Route: 048
     Dates: start: 20171127
  138. PANTOPRAZOLE SODIUM [Concomitant]
     Active Substance: PANTOPRAZOLE SODIUM
     Indication: Product used for unknown indication
     Dosage: 40 MILLIGRAM, Q12H CUMULATIVE DOSE 2720 MG
     Route: 042
     Dates: start: 20161010, end: 20161018
  139. PANTOPRAZOLE SODIUM [Concomitant]
     Active Substance: PANTOPRAZOLE SODIUM
     Indication: Product used for unknown indication
     Dosage: 40 MILLIGRAM, BID
     Route: 048
     Dates: start: 20161018, end: 20161030
  140. PANTOPRAZOLE SODIUM [Concomitant]
     Active Substance: PANTOPRAZOLE SODIUM
     Dosage: 40 MILLIGRAM, QD
     Route: 048
     Dates: start: 20161031, end: 20161123
  141. GLANDOMED [Concomitant]
     Indication: Product used for unknown indication
     Route: 061
     Dates: start: 20161208, end: 20161222
  142. SERTRALINE HYDROCHLORIDE [Concomitant]
     Active Substance: SERTRALINE HYDROCHLORIDE
     Indication: Product used for unknown indication
     Route: 048
     Dates: start: 201710
  143. SERTRALINE HYDROCHLORIDE [Concomitant]
     Active Substance: SERTRALINE HYDROCHLORIDE
     Indication: Product used for unknown indication
  144. HYDROMORPHONE HYDROCHLORIDE [Concomitant]
     Active Substance: HYDROMORPHONE HYDROCHLORIDE
     Indication: Pain prophylaxis
     Route: 048
     Dates: start: 201706, end: 20210309
  145. HYDROMORPHONE HYDROCHLORIDE [Concomitant]
     Active Substance: HYDROMORPHONE HYDROCHLORIDE
     Route: 048
     Dates: start: 20190816, end: 20210326
  146. HYDROMORPHONE HYDROCHLORIDE [Concomitant]
     Active Substance: HYDROMORPHONE HYDROCHLORIDE
     Dosage: 2 MILLIGRAM, Q12H
     Route: 048
     Dates: start: 20210326, end: 20210409
  147. HYDROMORPHONE HYDROCHLORIDE [Concomitant]
     Active Substance: HYDROMORPHONE HYDROCHLORIDE
     Dosage: 4 MILLIGRAM, BID
     Route: 048
     Dates: start: 20210410
  148. HYDROMORPHONE HYDROCHLORIDE [Concomitant]
     Active Substance: HYDROMORPHONE HYDROCHLORIDE
     Dates: start: 20210309
  149. LIPEGFILGRASTIM [Concomitant]
     Active Substance: LIPEGFILGRASTIM
     Indication: Prophylaxis
     Dosage: 6 MILLIGRAM, Q3WK CUMULATIVE DOSE MG
     Route: 058
     Dates: start: 20170113, end: 20170203
  150. SERTRALINE [Concomitant]
     Active Substance: SERTRALINE HYDROCHLORIDE
     Indication: Depression
     Route: 048
     Dates: start: 20171016
  151. SERTRALINE [Concomitant]
     Active Substance: SERTRALINE HYDROCHLORIDE
     Indication: Depression
     Route: 048
     Dates: start: 20230714
  152. SERTRALINE [Concomitant]
     Active Substance: SERTRALINE HYDROCHLORIDE
     Route: 048
     Dates: start: 20230714
  153. SUCRALAN [Concomitant]
     Indication: Prophylaxis
     Route: 048
     Dates: start: 201612, end: 20161212
  154. SUCRALAN [Concomitant]
     Route: 048
     Dates: start: 20161215
  155. LEVOCETIRIZINE DIHYDROCHLORIDE [Concomitant]
     Active Substance: LEVOCETIRIZINE DIHYDROCHLORIDE
     Indication: Product used for unknown indication
     Route: 065
     Dates: start: 20220801
  156. APREPITANT [Concomitant]
     Active Substance: APREPITANT
     Indication: Nausea
     Route: 065
     Dates: start: 20221123
  157. APREPITANT [Concomitant]
     Active Substance: APREPITANT
     Route: 065
     Dates: start: 20221202
  158. FILGRASTIM [Concomitant]
     Active Substance: FILGRASTIM
     Indication: Product used for unknown indication
     Dosage: 48 INTERNATIONAL UNIT, QWK
     Route: 058
     Dates: start: 20161208, end: 20161211
  159. FILGRASTIM [Concomitant]
     Active Substance: FILGRASTIM
     Indication: Product used for unknown indication
  160. ZOFRAN [Concomitant]
     Active Substance: ONDANSETRON HYDROCHLORIDE
     Indication: Prophylaxis of nausea and vomiting
     Route: 048
     Dates: start: 20161123, end: 20170204
  161. ZOFRAN [Concomitant]
     Active Substance: ONDANSETRON HYDROCHLORIDE
     Indication: Prophylaxis of nausea and vomiting
  162. TRAZODONE HYDROCHLORIDE [Concomitant]
     Active Substance: TRAZODONE HYDROCHLORIDE
     Indication: Product used for unknown indication
     Route: 065
     Dates: start: 20221129
  163. TRAZODONE HYDROCHLORIDE [Concomitant]
     Active Substance: TRAZODONE HYDROCHLORIDE
     Indication: Product used for unknown indication
  164. XARELTO [Concomitant]
     Active Substance: RIVAROXABAN
     Indication: Product used for unknown indication
     Dosage: 10 MILLIGRAM, QD
     Route: 048
     Dates: start: 20161026, end: 201612
  165. XARELTO [Concomitant]
     Active Substance: RIVAROXABAN
     Indication: Product used for unknown indication
  166. HALDOL [Concomitant]
     Active Substance: HALOPERIDOL
     Indication: Prophylaxis of nausea and vomiting
     Dosage: 8 GTT DROPS, QD (4 GTT, BID
     Route: 048
     Dates: start: 201702
  167. HALDOL [Concomitant]
     Active Substance: HALOPERIDOL
     Indication: Prophylaxis of nausea and vomiting
  168. LEVETIRACETAM [Concomitant]
     Active Substance: LEVETIRACETAM
     Indication: Epilepsy
     Dosage: 750 MILLIGRAM, Q12H
     Route: 048
     Dates: start: 20220201
  169. LEVETIRACETAM [Concomitant]
     Active Substance: LEVETIRACETAM
     Route: 065
  170. Paspertin [Concomitant]
     Indication: Nausea
     Route: 042
     Dates: start: 20161113
  171. CEOLAT [Concomitant]
     Indication: Prophylaxis of nausea and vomiting
     Route: 048
     Dates: start: 20161112, end: 201702
  172. CEOLAT [Concomitant]
     Indication: Prophylaxis of nausea and vomiting
  173. KCL [Concomitant]
     Active Substance: POTASSIUM CHLORIDE
     Indication: Prophylaxis
     Dosage: 1200 MILLIGRAM, Q12H
     Route: 048
     Dates: start: 20161117, end: 201702
  174. VIMPAT [Concomitant]
     Active Substance: LACOSAMIDE
     Indication: Product used for unknown indication
     Route: 065
     Dates: start: 20230602
  175. DEXAMETHASONE [Concomitant]
     Active Substance: DEXAMETHASONE
     Indication: Prophylaxis
     Dosage: 8 MILLIGRAM, Q12H CUMULATIVE DOSE 128 MG
     Route: 048
     Dates: start: 20161202, end: 20161203
  176. DEXAMETHASONE [Concomitant]
     Active Substance: DEXAMETHASONE
     Dosage: 8 MILLIGRAM, Q12H
     Route: 048
     Dates: start: 20180117, end: 20180122
  177. ALPRAZOLAM [Concomitant]
     Active Substance: ALPRAZOLAM
     Indication: Product used for unknown indication
     Route: 048
     Dates: start: 20161117
  178. ALPRAZOLAM [Concomitant]
     Active Substance: ALPRAZOLAM
     Indication: Product used for unknown indication
  179. IBUPROFEN [Concomitant]
     Active Substance: IBUPROFEN
     Indication: Product used for unknown indication
     Route: 065
  180. IBUPROFEN [Concomitant]
     Active Substance: IBUPROFEN
     Indication: Product used for unknown indication
  181. CALCIUM CARBONATE\CHOLECALCIFEROL [Concomitant]
     Active Substance: CALCIUM CARBONATE\CHOLECALCIFEROL
     Indication: Prophylaxis
     Dosage: 1 DOSAGE FORM, Q12H
     Route: 048
     Dates: start: 20161112
  182. CALCIUM CARBONATE\CHOLECALCIFEROL [Concomitant]
     Active Substance: CALCIUM CARBONATE\CHOLECALCIFEROL
     Indication: Osteoporosis prophylaxis
  183. SPIRONOLACTONE [Concomitant]
     Active Substance: SPIRONOLACTONE
     Indication: Product used for unknown indication
     Route: 065
     Dates: start: 20230811
  184. SPIRONOLACTONE [Concomitant]
     Active Substance: SPIRONOLACTONE
     Indication: Product used for unknown indication
  185. FILGRASTIM [Concomitant]
     Active Substance: FILGRASTIM
     Indication: Product used for unknown indication
     Route: 065
     Dates: start: 20230811, end: 20230924
  186. FILGRASTIM [Concomitant]
     Active Substance: FILGRASTIM
     Indication: Product used for unknown indication
  187. AMOXICILLIN\CLAVULANATE POTASSIUM [Concomitant]
     Active Substance: AMOXICILLIN\CLAVULANATE POTASSIUM
     Indication: Product used for unknown indication
     Dosage: 1 GRAM, Q12H
     Route: 048
     Dates: start: 20161212, end: 20161216
  188. DEXAMETHASONE [Concomitant]
     Active Substance: DEXAMETHASONE
     Indication: Headache
     Dosage: 8 MILLIGRAM, QD, CUMULATIVE DOSE 120 MG
     Route: 048
     Dates: start: 20161202, end: 20161203
  189. DEXAMETHASONE [Concomitant]
     Active Substance: DEXAMETHASONE
     Dosage: 8 MILLIGRAM, QD
     Route: 065
     Dates: start: 20180117, end: 20180122
  190. DEXAMETHASONE [Concomitant]
     Active Substance: DEXAMETHASONE
     Dosage: 8 MILLIGRAM, QD CUMULATIVE DOSE 152 MG
     Route: 048
     Dates: start: 20180817, end: 20180831
  191. DEXAMETHASONE [Concomitant]
     Active Substance: DEXAMETHASONE
     Route: 065
     Dates: start: 20221123, end: 20221215
  192. DEXAMETHASONE [Concomitant]
     Active Substance: DEXAMETHASONE
     Route: 065
     Dates: start: 20221123, end: 20221215
  193. CERNEVIT [Concomitant]
     Active Substance: VITAMINS
     Indication: Product used for unknown indication
  194. CERNEVIT [Concomitant]
     Active Substance: VITAMINS
     Indication: Product used for unknown indication
  195. ACETAMINOPHEN [Concomitant]
     Active Substance: ACETAMINOPHEN
     Indication: Product used for unknown indication
     Route: 065
  196. ACETAMINOPHEN [Concomitant]
     Active Substance: ACETAMINOPHEN
     Indication: Product used for unknown indication
  197. AMINO ACIDS\DEXTROSE\ELECTROLYTES NOS\SOYBEAN OIL [Concomitant]
     Active Substance: AMINO ACIDS\DEXTROSE\ELECTROLYTES NOS\SOYBEAN OIL
     Indication: Product used for unknown indication
     Route: 065
  198. MYSOLINE [Concomitant]
     Active Substance: PRIMIDONE
     Indication: Product used for unknown indication
     Route: 065
  199. MYSOLINE [Concomitant]
     Active Substance: PRIMIDONE
     Indication: Product used for unknown indication
  200. TRACEL [Concomitant]
     Indication: Product used for unknown indication
     Route: 065
  201. TRACEL [Concomitant]
     Indication: Product used for unknown indication
  202. CALCIUM CARBONATE\VITAMIN D [Concomitant]
     Active Substance: CALCIUM CARBONATE\VITAMIN D
     Indication: Prophylaxis
     Dosage: 2 DOSAGE FORM, QD (1 DF TWICE DAILY)
     Route: 048
     Dates: start: 20161112
  203. MAGNESIUM CARBONATE\MAGNESIUM OXIDE [Concomitant]
     Active Substance: MAGNESIUM CARBONATE\MAGNESIUM OXIDE
     Indication: Product used for unknown indication
     Route: 065
  204. MAGNESIUM CARBONATE\MAGNESIUM OXIDE [Concomitant]
     Active Substance: MAGNESIUM CARBONATE\MAGNESIUM OXIDE
     Indication: Product used for unknown indication
  205. OSELTAMIVIR [Concomitant]
     Active Substance: OSELTAMIVIR
     Indication: Product used for unknown indication
  206. OSELTAMIVIR [Concomitant]
     Active Substance: OSELTAMIVIR
     Indication: Product used for unknown indication
  207. BISOPROLOL FUMARATE [Concomitant]
     Active Substance: BISOPROLOL FUMARATE
     Indication: Prophylaxis
     Dosage: 1.25 MILLIGRAM, QD CUMULATIVE DOSE 127.5 MG
     Route: 048
     Dates: start: 20161117, end: 20170226
  208. BISOPROLOL FUMARATE [Concomitant]
     Active Substance: BISOPROLOL FUMARATE
     Indication: No adverse event
     Dosage: 2.5 MILLIGRAM, Q12H
     Route: 048
     Dates: start: 20170227
  209. BISOPROLOL FUMARATE [Concomitant]
     Active Substance: BISOPROLOL FUMARATE
     Indication: Product used for unknown indication
  210. LEVOCETIRIZINE [Concomitant]
     Active Substance: LEVOCETIRIZINE
     Indication: Product used for unknown indication
     Route: 065
     Dates: start: 20220801
  211. LEVOCETIRIZINE [Concomitant]
     Active Substance: LEVOCETIRIZINE
     Indication: Epilepsy

REACTIONS (16)
  - White blood cell count decreased [Recovered/Resolved]
  - White blood cell count decreased [Not Recovered/Not Resolved]
  - White blood cell count decreased [Not Recovered/Not Resolved]
  - White blood cell count decreased [Recovered/Resolved]
  - Dehydration [Recovered/Resolved]
  - Hemianopia [Recovered/Resolved]
  - Nausea [Recovered/Resolved]
  - Nausea [Recovered/Resolved]
  - Headache [Recovered/Resolved]
  - Thrombocytopenia [Recovering/Resolving]
  - Thrombocytopenia [Recovering/Resolving]
  - Skin fissures [Recovered/Resolved]
  - Intentional product use issue [Unknown]
  - Intentional product use issue [Unknown]
  - Headache [Recovered/Resolved]
  - Abdominal pain [Recovered/Resolved]

NARRATIVE: CASE EVENT DATE: 20180522
